FAERS Safety Report 18231286 (Version 8)
Quarter: 2023Q2

REPORT INFORMATION
  Report Type: Spontaneous
  Country: US (occurrence: US)
  Receive Date: 20200904
  Receipt Date: 20230623
  Transmission Date: 20230721
  Serious: Yes (Other)
  Sender: FDA-Public Use
  Company Number: US-GILEAD-2020-0493353

PATIENT
  Age: 51 Year
  Sex: Female
  Weight: 55.329 kg

DRUGS (28)
  1. VIREAD [Suspect]
     Active Substance: TENOFOVIR DISOPROXIL FUMARATE
     Indication: HIV infection
     Dosage: UNK
     Route: 048
     Dates: start: 20100824, end: 20111011
  2. VIREAD [Suspect]
     Active Substance: TENOFOVIR DISOPROXIL FUMARATE
     Dosage: UNK
     Route: 048
     Dates: start: 201008, end: 201110
  3. TRUVADA [Suspect]
     Active Substance: EMTRICITABINE\TENOFOVIR DISOPROXIL FUMARATE
     Indication: HIV infection
     Dosage: UNK
     Route: 048
     Dates: start: 20040922, end: 20100720
  4. TRUVADA [Suspect]
     Active Substance: EMTRICITABINE\TENOFOVIR DISOPROXIL FUMARATE
     Dosage: UNK
     Route: 048
     Dates: start: 200409, end: 201007
  5. EMTRIVA [Concomitant]
     Active Substance: EMTRICITABINE
  6. ACETAMINOPHEN [Concomitant]
     Active Substance: ACETAMINOPHEN
  7. ASPIRIN [Concomitant]
     Active Substance: ASPIRIN
  8. OMEPRAZOLE [Concomitant]
     Active Substance: OMEPRAZOLE
  9. PREDNISONE [Concomitant]
     Active Substance: PREDNISONE
  10. SIMVASTATIN [Concomitant]
     Active Substance: SIMVASTATIN
  11. NORVIR [Concomitant]
     Active Substance: RITONAVIR
  12. REYATAZ [Concomitant]
     Active Substance: ATAZANAVIR SULFATE
  13. VIDEX EC [Concomitant]
     Active Substance: DIDANOSINE
  14. ZERIT [Concomitant]
     Active Substance: STAVUDINE
  15. AMOXICILLIN [Concomitant]
     Active Substance: AMOXICILLIN
  16. AMPICILLIN [Concomitant]
     Active Substance: AMPICILLIN
  17. ATORVASTATIN [Concomitant]
     Active Substance: ATORVASTATIN
  18. CRESTOR [Concomitant]
     Active Substance: ROSUVASTATIN CALCIUM
  19. FAMOTIDINE [Concomitant]
     Active Substance: FAMOTIDINE
  20. PANTOPRAZOLE [Concomitant]
     Active Substance: PANTOPRAZOLE
  21. PRAVASTATIN [Concomitant]
     Active Substance: PRAVASTATIN
  22. TRIAMCINOLONE [Concomitant]
     Active Substance: TRIAMCINOLONE
  23. WARFARIN [Concomitant]
     Active Substance: WARFARIN
  24. INTELENCE [Concomitant]
     Active Substance: ETRAVIRINE
  25. ISENTRESS [Concomitant]
     Active Substance: RALTEGRAVIR POTASSIUM
  26. JULUCA [Concomitant]
     Active Substance: DOLUTEGRAVIR SODIUM\RILPIVIRINE HYDROCHLORIDE
  27. PREZCOBIX [Concomitant]
     Active Substance: COBICISTAT\DARUNAVIR ETHANOLATE
  28. PREZISTA [Concomitant]
     Active Substance: DARUNAVIR ETHANOLATE

REACTIONS (17)
  - Chronic kidney disease [Not Recovered/Not Resolved]
  - Nephrogenic anaemia [Not Recovered/Not Resolved]
  - End stage renal disease [Not Recovered/Not Resolved]
  - Glomerulosclerosis [Not Recovered/Not Resolved]
  - Hyperthyroidism [Not Recovered/Not Resolved]
  - Hyperkalaemia [Not Recovered/Not Resolved]
  - Osteonecrosis [Not Recovered/Not Resolved]
  - Drug ineffective [Unknown]
  - Renal failure [Unknown]
  - Bone loss [Unknown]
  - Emotional distress [Unknown]
  - Hypercalcaemia [Not Recovered/Not Resolved]
  - Hyperparathyroidism [Not Recovered/Not Resolved]
  - Anaemia [Not Recovered/Not Resolved]
  - Gait disturbance [Not Recovered/Not Resolved]
  - Mobility decreased [Not Recovered/Not Resolved]
  - Pain [Unknown]

NARRATIVE: CASE EVENT DATE: 20090801
